FAERS Safety Report 12156090 (Version 1)
Quarter: 2016Q1

REPORT INFORMATION
  Report Type: Spontaneous
  Country: FR (occurrence: FR)
  Receive Date: 20160307
  Receipt Date: 20160307
  Transmission Date: 20160526
  Serious: Yes (Hospitalization)
  Sender: FDA-Public Use
  Company Number: FR-ELI_LILLY_AND_COMPANY-FR201602007265

PATIENT
  Age: 68 Year
  Sex: Female

DRUGS (8)
  1. BISOPROLOL [Concomitant]
     Active Substance: BISOPROLOL
     Indication: HYPERTENSION
     Dosage: 2.5 MG, 2XDAY=5MG/DAY
     Route: 065
  2. DOMPERIDONE [Concomitant]
     Active Substance: DOMPERIDONE
     Indication: NAUSEA
     Dosage: 1TABLET,3XDAY PRN
     Route: 065
     Dates: start: 20160107
  3. CYMBALTA [Suspect]
     Active Substance: DULOXETINE HYDROCHLORIDE
     Indication: DEPRESSION
     Dosage: 30 MG, QD
     Route: 048
     Dates: start: 20160104, end: 20160107
  4. ZANIDIP [Concomitant]
     Active Substance: LERCANIDIPINE HYDROCHLORIDE
     Indication: HYPERTENSION
     Dosage: 20 MG, QD
     Route: 065
  5. STRESAM [Concomitant]
     Active Substance: ETIFOXINE
     Indication: ANXIETY
     Dosage: 50 MG, 3XDAY=150MG/DAY
     Route: 065
  6. XANAX [Concomitant]
     Active Substance: ALPRAZOLAM
     Indication: ANXIETY
     Dosage: 0.125 MG, 3XDAY
     Route: 065
     Dates: start: 20160107
  7. XANAX [Concomitant]
     Active Substance: ALPRAZOLAM
     Dosage: 0.375 MG, QD
     Route: 065
  8. DOLIPRANE [Concomitant]
     Active Substance: ACETAMINOPHEN
     Indication: PRODUCT USED FOR UNKNOWN INDICATION
     Dosage: UNK, UNKNOWN
     Route: 065

REACTIONS (8)
  - Hypernatriuria [Unknown]
  - Inappropriate antidiuretic hormone secretion [Unknown]
  - Cholestasis [Unknown]
  - Hyponatraemia [Recovering/Resolving]
  - Hypochloraemia [Unknown]
  - Hypocalcaemia [Unknown]
  - Hyperglycaemia [Unknown]
  - Blood osmolarity decreased [Unknown]

NARRATIVE: CASE EVENT DATE: 20160107
